FAERS Safety Report 16997460 (Version 1)
Quarter: 2019Q4

REPORT INFORMATION
  Report Type: Spontaneous
  Country: ES (occurrence: ES)
  Receive Date: 20191106
  Receipt Date: 20191106
  Transmission Date: 20200122
  Serious: Yes (Death, Hospitalization, Other)
  Sender: FDA-Public Use
  Company Number: ES-SA-2019SA305615

PATIENT
  Age: 71 Year
  Sex: Female

DRUGS (4)
  1. INFLIXIMAB [Suspect]
     Active Substance: INFLIXIMAB
     Indication: SERONEGATIVE ARTHRITIS
  2. LEFLUNOMIDE. [Suspect]
     Active Substance: LEFLUNOMIDE
     Indication: SERONEGATIVE ARTHRITIS
     Dosage: UNK
  3. PREDNISONE. [Suspect]
     Active Substance: PREDNISONE
     Indication: SERONEGATIVE ARTHRITIS
     Dosage: UNK
  4. METHOTREXATE. [Suspect]
     Active Substance: METHOTREXATE
     Indication: SERONEGATIVE ARTHRITIS
     Dosage: UNK

REACTIONS (33)
  - Tachypnoea [Unknown]
  - Oliguria [Unknown]
  - C-reactive protein increased [Unknown]
  - Hypertriglyceridaemia [Unknown]
  - Blood creatinine increased [Unknown]
  - Hyperferritinaemia [Unknown]
  - Acute respiratory failure [Unknown]
  - Hyponatraemia [Unknown]
  - Hypoproteinaemia [Unknown]
  - Anaemia [Unknown]
  - Pyrexia [Unknown]
  - Hypotension [Unknown]
  - Pulmonary embolism [Unknown]
  - Tachyarrhythmia [Unknown]
  - Thrombocytopenia [Unknown]
  - Prothrombin time prolonged [Unknown]
  - Pallor [Unknown]
  - Hypophonesis [Unknown]
  - Hypoalbuminaemia [Unknown]
  - Leukopenia [Unknown]
  - Red blood cell sedimentation rate increased [Unknown]
  - Hyperplasia [Unknown]
  - Multiple organ dysfunction syndrome [Fatal]
  - Abdominal pain [Unknown]
  - Liver function test increased [Unknown]
  - Blood lactate dehydrogenase increased [Unknown]
  - Hepatosplenomegaly [Unknown]
  - Thrombosis [Unknown]
  - Condition aggravated [Unknown]
  - Antiphospholipid syndrome [Unknown]
  - Malaise [Unknown]
  - Activated partial thromboplastin time prolonged [Unknown]
  - Pleural effusion [Unknown]
